FAERS Safety Report 21321221 (Version 5)
Quarter: 2023Q2

REPORT INFORMATION
  Report Type: Spontaneous
  Country: IT (occurrence: IT)
  Receive Date: 20220912
  Receipt Date: 20230617
  Transmission Date: 20230722
  Serious: Yes (Other)
  Sender: FDA-Public Use
  Company Number: IT-ROCHE-3172593

PATIENT
  Age: 49 Year
  Sex: Female

DRUGS (22)
  1. DOXORUBICIN [Suspect]
     Active Substance: DOXORUBICIN
     Indication: Diffuse large B-cell lymphoma stage IV
     Dosage: UNK, 5 CYCLE
     Route: 065
     Dates: start: 2020
  2. MELPHALAN [Suspect]
     Active Substance: MELPHALAN
     Indication: Diffuse large B-cell lymphoma stage IV
     Dosage: UNK
     Route: 065
     Dates: start: 2020
  3. MELPHALAN [Suspect]
     Active Substance: MELPHALAN
     Indication: Autologous haematopoietic stem cell transplant
  4. OXALIPLATIN [Suspect]
     Active Substance: OXALIPLATIN
     Indication: Diffuse large B-cell lymphoma stage IV
     Dosage: UNK, 2 CYCLE
     Route: 065
     Dates: start: 2020
  5. VINCRISTINE [Suspect]
     Active Substance: VINCRISTINE
     Indication: Diffuse large B-cell lymphoma stage IV
     Dosage: UNK, 5 CYCLE
     Route: 065
     Dates: start: 2020
  6. FOTEMUSTINE [Suspect]
     Active Substance: FOTEMUSTINE
     Indication: Diffuse large B-cell lymphoma stage IV
     Dosage: UNK
     Route: 065
     Dates: start: 2020
  7. FOTEMUSTINE [Suspect]
     Active Substance: FOTEMUSTINE
     Indication: Autologous haematopoietic stem cell transplant
  8. GANCICLOVIR [Suspect]
     Active Substance: GANCICLOVIR
     Indication: Human herpesvirus 6 infection
     Dosage: UNK
     Route: 065
  9. RITUXIMAB [Suspect]
     Active Substance: RITUXIMAB
     Indication: Diffuse large B-cell lymphoma stage IV
     Dosage: UNK, 5 CYCLE (1 CYCLE -HIGH DOSE)
     Route: 065
     Dates: start: 2020
  10. CYCLOPHOSPHAMIDE [Suspect]
     Active Substance: CYCLOPHOSPHAMIDE
     Indication: Diffuse large B-cell lymphoma stage IV
     Dosage: UNK, 5 CYCLE
     Route: 065
     Dates: start: 2020
  11. CYCLOPHOSPHAMIDE [Suspect]
     Active Substance: CYCLOPHOSPHAMIDE
     Indication: Lymphodepletion
  12. CYTARABINE [Suspect]
     Active Substance: CYTARABINE
     Indication: Diffuse large B-cell lymphoma stage IV
     Dosage: UNK, 2 CYCLE
     Route: 065
     Dates: start: 2020
  13. CYTARABINE [Suspect]
     Active Substance: CYTARABINE
     Indication: Autologous haematopoietic stem cell transplant
  14. METHOTREXATE [Suspect]
     Active Substance: METHOTREXATE
     Indication: Diffuse large B-cell lymphoma stage IV
     Dosage: UNK, 1 CYCLE -HIGH DOSE
     Route: 065
     Dates: start: 2020
  15. ETOPOSIDE [Suspect]
     Active Substance: ETOPOSIDE
     Indication: Diffuse large B-cell lymphoma stage IV
     Dosage: UNK
     Route: 065
     Dates: start: 2020
  16. ETOPOSIDE [Suspect]
     Active Substance: ETOPOSIDE
     Indication: Autologous haematopoietic stem cell transplant
  17. TOCILIZUMAB [Concomitant]
     Active Substance: TOCILIZUMAB
     Indication: Cytokine release syndrome
     Dosage: UNK, FOUR DOSES
     Route: 065
  18. TISAGENLECLEUCEL [Concomitant]
     Active Substance: TISAGENLECLEUCEL
     Indication: Lymphodepletion
     Dosage: UNK
     Route: 065
  19. TISAGENLECLEUCEL [Concomitant]
     Active Substance: TISAGENLECLEUCEL
     Indication: Diffuse large B-cell lymphoma
  20. DEXAMETHASONE [Concomitant]
     Active Substance: DEXAMETHASONE
     Indication: Cytokine release syndrome
     Dosage: 20 MILLIGRAM, SINGLE DOSE
     Route: 065
  21. THIOTEPA [Concomitant]
     Active Substance: THIOTEPA
     Indication: Diffuse large B-cell lymphoma
     Dosage: 5 MILLIGRAM/KILOGRAM
     Route: 065
  22. FLUDARABINE [Concomitant]
     Active Substance: FLUDARABINE PHOSPHATE
     Indication: Lymphodepletion
     Dosage: UNK
     Route: 065

REACTIONS (5)
  - Staphylococcal sepsis [Unknown]
  - Human herpesvirus 6 infection [Unknown]
  - Disease progression [Recovered/Resolved]
  - Drug ineffective [Unknown]
  - Off label use [Unknown]

NARRATIVE: CASE EVENT DATE: 20200101
